FAERS Safety Report 21226191 (Version 2)
Quarter: 2022Q3

REPORT INFORMATION
  Report Type: Spontaneous
  Country: CA (occurrence: CA)
  Receive Date: 20220818
  Receipt Date: 20220901
  Transmission Date: 20221027
  Serious: Yes (Other)
  Sender: FDA-Public Use
  Company Number: CA-SUN PHARMACEUTICAL INDUSTRIES LTD-2022R1-348588

PATIENT
  Age: 24 Year
  Sex: Female

DRUGS (8)
  1. FENTANYL [Suspect]
     Active Substance: FENTANYL
     Indication: Product used for unknown indication
     Dosage: UNK
     Route: 060
  2. BUPRENORPHINE\NALOXONE [Suspect]
     Active Substance: BUPRENORPHINE\NALOXONE
     Indication: Drug use disorder
     Dosage: 0.5 MILLIGRAM, DAILY
     Route: 060
  3. BUPRENORPHINE\NALOXONE [Suspect]
     Active Substance: BUPRENORPHINE\NALOXONE
     Dosage: MAXIMUM DOSE 32 MG
     Route: 065
  4. METHADONE [Suspect]
     Active Substance: METHADONE HYDROCHLORIDE
     Indication: Drug use disorder
     Dosage: UNK
     Route: 065
  5. MORPHINE [Suspect]
     Active Substance: MORPHINE
     Indication: Drug use disorder
     Dosage: UNK
     Route: 048
  6. HYDROMORPHONE [Suspect]
     Active Substance: HYDROMORPHONE
     Indication: Drug use disorder
     Dosage: UNK
     Route: 048
  7. DIAMORPHINE [Suspect]
     Active Substance: DIAMORPHINE
     Indication: Drug use disorder
     Dosage: UNK
     Route: 065
  8. HEROIN [Suspect]
     Active Substance: DIAMORPHINE
     Indication: Product used for unknown indication
     Dosage: UNK
     Route: 065

REACTIONS (3)
  - Drug use disorder [Unknown]
  - Exposure during pregnancy [Unknown]
  - Live birth [Unknown]
